FAERS Safety Report 4650767-2 (Version None)
Quarter: 2005Q2

REPORT INFORMATION
  Report Type: 
  Country: None (occurrence: None)
  Receive Date: 20050503
  Receipt Date: 20050411
  Transmission Date: 20051028
  Serious: Yes (Hospitalization, Other)
  Sender: FDA-Public Use
  Company Number: 200510964EU

PATIENT
  Age: 2 Month
  Sex: Female

DRUGS (1)
  1. CLEXANE [Suspect]
     Indication: THROMBOSIS
     Dosage: DOSE: 150/80
     Dates: start: 20050301, end: 20050410

REACTIONS (4)
  - DRUG EXPOSURE VIA BREAST MILK [None]
  - FEEDING PROBLEM IN NEWBORN [None]
  - TRANSAMINASES INCREASED [None]
  - WEIGHT DECREASED [None]
